FAERS Safety Report 14853464 (Version 1)
Quarter: 2018Q2

REPORT INFORMATION
  Report Type: Spontaneous
  Country: US (occurrence: US)
  Receive Date: 20180507
  Receipt Date: 20180507
  Transmission Date: 20180711
  Serious: Yes (Hospitalization)
  Sender: FDA-Public Use
  Company Number: US-CURIUM-199000022

PATIENT

DRUGS (1)
  1. TECHNESCAN MAG3 [Suspect]
     Active Substance: TECHNETIUM TC-99M TIATIDE

REACTIONS (5)
  - Pulmonary oedema [Unknown]
  - Pallor [Unknown]
  - Dyspnoea [Unknown]
  - Anaphylactoid reaction [None]
  - Stridor [Unknown]
